FAERS Safety Report 24178922 (Version 1)
Quarter: 2024Q3

REPORT INFORMATION
  Report Type: Spontaneous
  Country: FR (occurrence: FR)
  Receive Date: 20240806
  Receipt Date: 20240806
  Transmission Date: 20241016
  Serious: Yes (Hospitalization, Other)
  Sender: RANBAXY
  Company Number: FR-AFSSAPS-TO2024000842

PATIENT
  Age: 43 Year
  Sex: Female
  Weight: 79 kg

DRUGS (3)
  1. KETOPROFEN [Suspect]
     Active Substance: KETOPROFEN
     Indication: Sciatica
     Dosage: 100 MILLIGRAM, DAILY
     Route: 048
     Dates: start: 20240116, end: 20240120
  2. MORPHINE [Suspect]
     Active Substance: MORPHINE
     Indication: Sciatica
     Dosage: 1 DOSAGE FORM, DAILY
     Route: 065
     Dates: start: 20240116, end: 20240120
  3. ACETAMINOPHEN\CODEINE PHOSPHATE [Suspect]
     Active Substance: ACETAMINOPHEN\CODEINE PHOSPHATE
     Indication: Sciatica
     Dosage: 1 DOSAGE FORM, DAILY
     Route: 048
     Dates: start: 20240116, end: 20240120

REACTIONS (1)
  - Gastroduodenal ulcer [Recovering/Resolving]

NARRATIVE: CASE EVENT DATE: 20240118
